FAERS Safety Report 7641918-6 (Version None)
Quarter: 2011Q3

REPORT INFORMATION
  Report Type: 
  Country: None (occurrence: None)
  Receive Date: 20110727
  Receipt Date: 20110727
  Transmission Date: 20111222
  Serious: No
  Sender: FDA-Public Use
  Company Number: None

PATIENT
  Age: 18 Year
  Sex: Male
  Weight: 88.4514 kg

DRUGS (2)
  1. SERTRALINE HYDROCHLORIDE [Suspect]
     Indication: DEPRESSION
     Dosage: 1 PO QHS
     Dates: start: 20110701
  2. SERTRALINE HYDROCHLORIDE [Suspect]
     Indication: POST-TRAUMATIC STRESS DISORDER
     Dosage: 1 PO QHS
     Dates: start: 20110701

REACTIONS (2)
  - TRISMUS [None]
  - DIARRHOEA [None]
